FAERS Safety Report 5742262-4 (Version None)
Quarter: 2008Q2

REPORT INFORMATION
  Report Type: 
  Country: None (occurrence: None)
  Receive Date: 20080519
  Receipt Date: 20080508
  Transmission Date: 20081010
  Serious: Yes (Hospitalization)
  Sender: FDA-Public Use
  Company Number: PHHO2008US05615

PATIENT
  Age: 47 Year
  Sex: Female
  Weight: 90.7 kg

DRUGS (32)
  1. PSYCHIATRIC THERAPY [Suspect]
  2. AMITRIPTYLINE HCL [Concomitant]
  3. AMITIZA [Concomitant]
  4. LEVOTHYROXINE SODIUM [Concomitant]
  5. MAGNESIUM CITRATE [Concomitant]
  6. VITAMIN D [Concomitant]
  7. CALCIUM [Concomitant]
  8. COGENTIN [Concomitant]
  9. CREON [Concomitant]
  10. DEPAKOTE [Concomitant]
  11. DEPLIN [Concomitant]
  12. DOCUSATE [Concomitant]
  13. FLAXSEED OIL [Concomitant]
  14. LACTULOSE [Concomitant]
  15. GLUCOSAMINE W/CHONDROITIN [Concomitant]
  16. VITAMIN CAP [Concomitant]
  17. NEURONTIN [Concomitant]
  18. OMEGA 3 FISH OIL [Concomitant]
  19. PINDOLOL [Concomitant]
  20. PROAMATINE [Concomitant]
  21. RELAFEN [Concomitant]
  22. RISPERIDONE [Concomitant]
  23. ROZEREM [Concomitant]
  24. SYMMETREL [Concomitant]
  25. ASCORBIC ACID [Concomitant]
  26. ZYPREXA [Concomitant]
  27. ULTRAM [Concomitant]
  28. MAXALT [Concomitant]
  29. ZOMIG [Concomitant]
  30. VALERIAN [Concomitant]
  31. PROLIXIN [Concomitant]
  32. TEGASEROD [Suspect]
     Indication: IRRITABLE BOWEL SYNDROME
     Dosage: 12MG
     Route: 048
     Dates: start: 20080325

REACTIONS (3)
  - DYSPNOEA EXERTIONAL [None]
  - OEDEMA PERIPHERAL [None]
  - SWELLING [None]
